FAERS Safety Report 17744802 (Version 11)
Quarter: 2025Q1

REPORT INFORMATION
  Report Type: Spontaneous
  Country: US (occurrence: US)
  Receive Date: 20200505
  Receipt Date: 20250305
  Transmission Date: 20250409
  Serious: No
  Sender: PFIZER
  Company Number: US-PFIZER INC-2020177164

PATIENT
  Age: 76 Year
  Sex: Female
  Weight: 88 kg

DRUGS (1)
  1. XELJANZ XR [Suspect]
     Active Substance: TOFACITINIB CITRATE
     Indication: Rheumatoid arthritis
     Dosage: 11 MG, 1X/DAY, (11 MG TAKEN ONCE DAILY IN THE MORNING WITH GLASS OF WATER)
     Route: 048
     Dates: start: 2012

REACTIONS (4)
  - Accident [Recovering/Resolving]
  - Limb injury [Recovering/Resolving]
  - Ligament sprain [Recovering/Resolving]
  - Product prescribing error [Unknown]

NARRATIVE: CASE EVENT DATE: 20240101
